FAERS Safety Report 19433356 (Version 1)
Quarter: 2021Q2

REPORT INFORMATION
  Report Type: Report from Study
  Country: CN (occurrence: CN)
  Receive Date: 20210618
  Receipt Date: 20210618
  Transmission Date: 20210717
  Serious: Yes (Hospitalization)
  Sender: FDA-Public Use
  Company Number: CN-KARYOPHARM-2021KPT000788

PATIENT
  Age: 48 Year
  Sex: Male

DRUGS (4)
  1. OXALIPLATIN. [Suspect]
     Active Substance: OXALIPLATIN
     Indication: ANGIOIMMUNOBLASTIC T-CELL LYMPHOMA STAGE III
     Dosage: 231 MG, 1 IN 1 DAY
     Route: 042
     Dates: start: 20210511, end: 20210511
  2. GEMCITABINE. [Suspect]
     Active Substance: GEMCITABINE
     Indication: ANGIOIMMUNOBLASTIC T-CELL LYMPHOMA STAGE III
     Dosage: 1.78 G, 1 IN 1 DAY
     Route: 042
     Dates: start: 20210511, end: 20210511
  3. SELINEXOR [Suspect]
     Active Substance: SELINEXOR
     Indication: ANGIOIMMUNOBLASTIC T-CELL LYMPHOMA STAGE III
     Dosage: 60 MG, 1 IN 1 DAY
     Route: 048
     Dates: start: 20210511, end: 20210511
  4. GEMCITABINE. [Suspect]
     Active Substance: GEMCITABINE
     Dosage: 1.7 G, 1 IN 1 DAY
     Route: 042
     Dates: start: 20210518, end: 20210518

REACTIONS (1)
  - Pyrexia [Not Recovered/Not Resolved]

NARRATIVE: CASE EVENT DATE: 20210604
